FAERS Safety Report 12831430 (Version 1)
Quarter: 2016Q4

REPORT INFORMATION
  Report Type: Report from Study
  Country: None (occurrence: AR)
  Receive Date: 20161008
  Receipt Date: 20161008
  Transmission Date: 20170207
  Serious: Yes (Death)
  Sender: FDA-Public Use
  Company Number: AR-ABBVIE-16P-007-1748763-00

PATIENT
  Sex: Female

DRUGS (1)
  1. VIEKIRA PAK [Suspect]
     Active Substance: DASABUVIR\OMBITASVIR\PARITAPREVIR\RITONAVIR
     Indication: HEPATITIS C
     Dosage: 3 IN THE MORNING AND 1 AT NIGHT
     Route: 048
     Dates: start: 20160801

REACTIONS (3)
  - Head injury [Unknown]
  - Traumatic intracranial haemorrhage [Fatal]
  - Fall [Unknown]
